FAERS Safety Report 13403578 (Version 3)
Quarter: 2017Q2

REPORT INFORMATION
  Report Type: Report from Study
  Country: JP (occurrence: JP)
  Receive Date: 20170405
  Receipt Date: 20170504
  Transmission Date: 20170830
  Serious: Yes (Hospitalization)
  Sender: FDA-Public Use
  Company Number: JP-PFIZER INC-2017060775

PATIENT
  Age: 68 Year
  Sex: Female

DRUGS (12)
  1. SUNITINIB MALATE. [Suspect]
     Active Substance: SUNITINIB MALATE
     Indication: RENAL CELL CARCINOMA
     Dosage: 50 MG, 1 IN 1 D (LAST DOSE PRIOR TO SAES (DRUG-INDUCED LIVER INJURY/THROMBOCYTOPENIA): 11AUG2016
     Route: 048
     Dates: start: 20160721
  2. SODIUM GUALENATE HYDRATE [Concomitant]
     Active Substance: SODIUM GUALENATE MONOHYDRATE
     Indication: INFECTION
     Dosage: 10 ML, 1X/DAY (1 IN 1 D)
     Route: 061
     Dates: start: 20160721
  3. ACETAMINOPHEN. [Concomitant]
     Active Substance: ACETAMINOPHEN
     Indication: WOUND COMPLICATION
     Dosage: 300 MG, AS NEEDED
     Route: 048
     Dates: start: 20160629
  4. TRICHLORMETHIAZIDE [Concomitant]
     Active Substance: TRICHLORMETHIAZIDE
     Indication: HYPERTENSION
     Dosage: 1 MG, DAILY
     Route: 048
     Dates: end: 20160802
  5. DEQUALINIUM CHLORIDE [Concomitant]
     Active Substance: DEQUALINIUM CHLORIDE
     Indication: STOMATITIS
     Dosage: 0.25 MG, AS NEEDED
     Route: 061
     Dates: start: 20160729, end: 20160817
  6. SUNITINIB MALATE. [Suspect]
     Active Substance: SUNITINIB MALATE
     Dosage: 25 MG, 1X/DAY
     Route: 048
     Dates: end: 20170303
  7. SODIUM GUALENATE HYDRATE [Concomitant]
     Active Substance: SODIUM GUALENATE MONOHYDRATE
     Indication: STOMATITIS
     Dosage: 10 ML, 1X/DAY (1 IN 1 D)
     Route: 048
     Dates: start: 20160917
  8. CANDESARTAN CILEXETIL. [Concomitant]
     Active Substance: CANDESARTAN CILEXETIL
     Dosage: 8 MG,EVERY DAY
     Route: 048
  9. TRICHLORMETHIAZIDE [Concomitant]
     Active Substance: TRICHLORMETHIAZIDE
     Dosage: 2 MG, DAILY
     Route: 048
     Dates: start: 20160803
  10. OLOPATADINE HYDROCHLORIDE. [Concomitant]
     Active Substance: OLOPATADINE HYDROCHLORIDE
     Indication: CATARACT
     Dosage: 1 GTT, DAILY
     Route: 047
  11. TRICHLORMETHIAZIDE [Concomitant]
     Active Substance: TRICHLORMETHIAZIDE
     Dosage: 2 MG, DAILY
     Route: 048
     Dates: end: 20160803
  12. HEPARINOID [Concomitant]
     Active Substance: CHONDROITIN SULFATE (BOVINE)
     Indication: PALMAR-PLANTAR ERYTHRODYSAESTHESIA SYNDROME
     Dosage: 50 G, AS NEEDED
     Route: 061
     Dates: start: 20160721

REACTIONS (3)
  - Drug-induced liver injury [Recovered/Resolved]
  - Malaise [Recovered/Resolved]
  - Thrombocytopenia [Recovered/Resolved]

NARRATIVE: CASE EVENT DATE: 20160812
